FAERS Safety Report 9928204 (Version 2)
Quarter: 2014Q4

REPORT INFORMATION
  Report Type: Report from Study
  Country: US (occurrence: US)
  Receive Date: 20140227
  Receipt Date: 20141219
  Transmission Date: 20150529
  Serious: Yes (Other)
  Sender: FDA-Public Use
  Company Number: US-ROCHE-1332269

PATIENT
  Age: 32 Year
  Sex: Female

DRUGS (16)
  1. ACTOS [Concomitant]
     Active Substance: PIOGLITAZONE HYDROCHLORIDE
  2. GLIPIZID [Concomitant]
  3. LUCENTIS [Suspect]
     Active Substance: RANIBIZUMAB
     Indication: DIABETIC RETINOPATHY
  4. LUCENTIS [Suspect]
     Active Substance: RANIBIZUMAB
     Indication: RETINAL DEGENERATION
  5. SYSTANE (HYPROMELLOSE 2910 (4000 MPA.S)) [Concomitant]
     Active Substance: HYPROMELLOSE 2910 (4000 MPA.S)
     Dosage: OU
     Route: 065
  6. AVASTIN [Suspect]
     Active Substance: BEVACIZUMAB
     Indication: DIABETIC RETINAL OEDEMA
     Dosage: RIGHT EYE
     Route: 050
     Dates: end: 20100608
  7. WELLBUTRIN [Concomitant]
     Active Substance: BUPROPION HYDROCHLORIDE
     Route: 065
  8. OMEGA 3 [Concomitant]
     Active Substance: OMEGA-3 FATTY ACIDS
  9. LYRICA [Concomitant]
     Active Substance: PREGABALIN
     Route: 065
  10. CARBAMAZEPINE. [Concomitant]
     Active Substance: CARBAMAZEPINE
  11. TYLENOL [Concomitant]
     Active Substance: ACETAMINOPHEN
  12. METFORMIN [Concomitant]
     Active Substance: METFORMIN HYDROCHLORIDE
     Route: 065
  13. LUCENTIS [Suspect]
     Active Substance: RANIBIZUMAB
     Indication: RETINAL OEDEMA
     Dosage: ALSO RECEIVED ON 17/NOV/2010, 10/DEC/2010, 06/APR/2011, 01/JUN/2011, 08/JUL/2011, 08/AUG/2011, 08/AU
     Route: 050
     Dates: start: 20100827
  14. MOTRIN [Concomitant]
     Active Substance: IBUPROFEN
  15. INSULIN [Concomitant]
     Active Substance: INSULIN NOS
  16. CYCLOBENZAPRINE [Concomitant]
     Active Substance: CYCLOBENZAPRINE

REACTIONS (9)
  - Macular oedema [Unknown]
  - Retinal haemorrhage [Unknown]
  - Fatigue [Unknown]
  - Photopsia [Unknown]
  - Blood glucose increased [Unknown]
  - Vitreous floaters [Unknown]
  - Neuralgia [Unknown]
  - Visual acuity reduced [Unknown]
  - Vision blurred [Unknown]

NARRATIVE: CASE EVENT DATE: 20101117
